FAERS Safety Report 10408788 (Version 1)
Quarter: 2014Q3

REPORT INFORMATION
  Report Type: Spontaneous
  Country: CN (occurrence: None)
  Receive Date: 20140822
  Receipt Date: 20140822
  Transmission Date: 20150326
  Serious: Yes (Death, Other)
  Sender: FDA-Public Use
  Company Number: 2014CN01108

PATIENT
  Age: 41 Year
  Sex: Male

DRUGS (2)
  1. HEPATITIS B IMMUNE GLOBULIN [Suspect]
     Active Substance: HUMAN HEPATITIS B VIRUS IMMUNE GLOBULIN
  2. LAMIVUDINE (LAMIVUDINE) [Suspect]
     Active Substance: LAMIVUDINE

REACTIONS (3)
  - Hepatitis B [None]
  - Hepatocellular carcinoma [None]
  - Disease recurrence [None]
